FAERS Safety Report 8613518-2 (Version None)
Quarter: 2012Q3

REPORT INFORMATION
  Report Type: 
  Country: None (occurrence: None)
  Receive Date: 20120823
  Receipt Date: 20120807
  Transmission Date: 20120928
  Serious: Yes (Hospitalization)
  Sender: FDA-Public Use
  Company Number: JP-009507513-1207JPN010233

PATIENT

DRUGS (7)
  1. HALCION [Suspect]
     Indication: INSOMNIA
     Dosage: 0.5 MG, QD
     Route: 048
     Dates: start: 20120425, end: 20120601
  2. VITAMEDIN [Concomitant]
     Dosage: 75 MG, QD
     Route: 048
     Dates: start: 20120601, end: 20120601
  3. FLUVOXAMINE MALEATE [Suspect]
     Indication: DEPRESSION
     Dosage: 75 MG, QD
     Route: 048
     Dates: start: 20120425, end: 20120601
  4. HALCION [Suspect]
     Dosage: DOSAGE IS UNCERTAIN DURING A DAY.
     Route: 048
     Dates: start: 20120101
  5. DOGMATYL [Suspect]
     Indication: DEPRESSION
     Dosage: 150 MG, QD
     Route: 048
     Dates: start: 20120425, end: 20120601
  6. REMERON [Suspect]
     Indication: DEPRESSION
     Dosage: 15 MG, QD
     Route: 048
     Dates: start: 20120601, end: 20120601
  7. MOTILIUM [Suspect]
     Dosage: 30 MG, QD
     Route: 048
     Dates: start: 20120601, end: 20120601

REACTIONS (2)
  - HEPATIC FUNCTION ABNORMAL [None]
  - JAUNDICE [None]
